FAERS Safety Report 13836106 (Version 1)
Quarter: 2017Q3

REPORT INFORMATION
  Report Type: Report from Study
  Country: US (occurrence: US)
  Receive Date: 20170804
  Receipt Date: 20170804
  Transmission Date: 20171127
  Serious: Yes (Other)
  Sender: FDA-Public Use
  Company Number: US-AMGEN-USASL2017115484

PATIENT
  Age: 69 Year
  Sex: Female

DRUGS (1)
  1. ENBREL [Suspect]
     Active Substance: ETANERCEPT
     Indication: PSORIASIS
     Dosage: UNK
     Route: 065
     Dates: end: 2013

REACTIONS (9)
  - Loss of consciousness [Unknown]
  - Haemorrhoids [Not Recovered/Not Resolved]
  - Fall [Unknown]
  - Psoriasis [Unknown]
  - Dislocation of vertebra [Unknown]
  - Cardiac murmur [Not Recovered/Not Resolved]
  - Head injury [Unknown]
  - Hernia [Not Recovered/Not Resolved]
  - Nerve compression [Unknown]

NARRATIVE: CASE EVENT DATE: 201609
